FAERS Safety Report 19662433 (Version 2)
Quarter: 2022Q1

REPORT INFORMATION
  Report Type: Spontaneous
  Country: US (occurrence: None)
  Receive Date: 20210805
  Receipt Date: 20220207
  Transmission Date: 20220423
  Serious: Yes (Other)
  Sender: FDA-Public Use
  Company Number: 2021A652043

PATIENT
  Age: 58 Year
  Sex: Female
  Weight: 64 kg

DRUGS (57)
  1. NEXIUM [Suspect]
     Active Substance: ESOMEPRAZOLE MAGNESIUM
     Indication: Gastrooesophageal reflux disease
     Route: 048
     Dates: start: 1998, end: 2018
  2. NEXIUM [Suspect]
     Active Substance: ESOMEPRAZOLE MAGNESIUM
     Indication: Gastrooesophageal reflux disease
     Route: 048
     Dates: start: 1998, end: 2018
  3. NEXIUM [Suspect]
     Active Substance: ESOMEPRAZOLE MAGNESIUM
     Indication: Gastrooesophageal reflux disease
     Route: 048
     Dates: start: 2001, end: 2018
  4. NEXIUM [Suspect]
     Active Substance: ESOMEPRAZOLE MAGNESIUM
     Indication: Gastrooesophageal reflux disease
     Route: 048
     Dates: start: 2001, end: 2018
  5. NEXIUM [Suspect]
     Active Substance: ESOMEPRAZOLE MAGNESIUM
     Indication: Gastrooesophageal reflux disease
     Dosage: GENERIC
     Route: 065
     Dates: start: 2017, end: 2018
  6. NEXIUM [Suspect]
     Active Substance: ESOMEPRAZOLE MAGNESIUM
     Indication: Gastrooesophageal reflux disease
     Dosage: GENERIC
     Route: 065
     Dates: start: 2017, end: 2018
  7. PRILOSEC [Suspect]
     Active Substance: OMEPRAZOLE MAGNESIUM
     Indication: Gastrooesophageal reflux disease
     Route: 048
     Dates: start: 1998, end: 2018
  8. PRILOSEC [Suspect]
     Active Substance: OMEPRAZOLE MAGNESIUM
     Indication: Gastrooesophageal reflux disease
     Route: 048
     Dates: start: 1998, end: 2018
  9. PRILOSEC [Suspect]
     Active Substance: OMEPRAZOLE MAGNESIUM
     Indication: Gastrooesophageal reflux disease
     Dosage: GENERIC
     Route: 065
     Dates: end: 2016
  10. PRILOSEC [Suspect]
     Active Substance: OMEPRAZOLE MAGNESIUM
     Indication: Gastrooesophageal reflux disease
     Dosage: GENERIC
     Route: 065
     Dates: end: 2016
  11. PRILOSEC OTC [Suspect]
     Active Substance: OMEPRAZOLE MAGNESIUM
     Indication: Gastrooesophageal reflux disease
     Route: 048
     Dates: start: 1998, end: 2018
  12. PRILOSEC OTC [Suspect]
     Active Substance: OMEPRAZOLE MAGNESIUM
     Indication: Gastrooesophageal reflux disease
     Route: 048
     Dates: start: 1998, end: 2018
  13. PRILOSEC OTC [Suspect]
     Active Substance: OMEPRAZOLE MAGNESIUM
     Indication: Gastrooesophageal reflux disease
     Route: 048
     Dates: start: 2003, end: 2018
  14. PRILOSEC OTC [Suspect]
     Active Substance: OMEPRAZOLE MAGNESIUM
     Indication: Gastrooesophageal reflux disease
     Route: 048
     Dates: start: 2003, end: 2018
  15. PREVACID [Suspect]
     Active Substance: LANSOPRAZOLE
     Indication: Gastrooesophageal reflux disease
     Route: 065
     Dates: start: 1998
  16. PREVACID [Suspect]
     Active Substance: LANSOPRAZOLE
     Indication: Gastrooesophageal reflux disease
     Route: 065
     Dates: start: 1998
  17. PROTONIX [Suspect]
     Active Substance: PANTOPRAZOLE SODIUM
     Indication: Gastrooesophageal reflux disease
     Route: 065
     Dates: start: 1998, end: 2018
  18. PROTONIX [Suspect]
     Active Substance: PANTOPRAZOLE SODIUM
     Indication: Gastrooesophageal reflux disease
     Route: 065
     Dates: start: 1998, end: 2018
  19. PROTONIX [Suspect]
     Active Substance: PANTOPRAZOLE SODIUM
     Indication: Gastrooesophageal reflux disease
     Dosage: GENERIC
     Route: 065
     Dates: start: 2016, end: 2018
  20. PROTONIX [Suspect]
     Active Substance: PANTOPRAZOLE SODIUM
     Indication: Gastrooesophageal reflux disease
     Dosage: GENERIC
     Route: 065
     Dates: start: 2016, end: 2018
  21. PROTONIX [Suspect]
     Active Substance: PANTOPRAZOLE SODIUM
     Indication: Gastrooesophageal reflux disease
     Route: 065
     Dates: start: 2000, end: 2018
  22. PROTONIX [Suspect]
     Active Substance: PANTOPRAZOLE SODIUM
     Indication: Gastrooesophageal reflux disease
     Route: 065
     Dates: start: 2000, end: 2018
  23. SIMVASTATIN [Concomitant]
     Active Substance: SIMVASTATIN
  24. DICLOFENAC [Concomitant]
     Active Substance: DICLOFENAC
  25. LIPITOR [Concomitant]
     Active Substance: ATORVASTATIN CALCIUM
  26. DIOVAN [Concomitant]
     Active Substance: VALSARTAN
  27. LISINOPRIL [Concomitant]
     Active Substance: LISINOPRIL
  28. MELOXICAM [Concomitant]
     Active Substance: MELOXICAM
  29. HYDROCHLOROTHIAZIDE [Concomitant]
     Active Substance: HYDROCHLOROTHIAZIDE
  30. PLAVIZ [Concomitant]
  31. PAXIL [Concomitant]
     Active Substance: PAROXETINE HYDROCHLORIDE
  32. EQUATE [Concomitant]
  33. PEPCID [Concomitant]
     Active Substance: FAMOTIDINE
  34. METFORMIN HYDROCHLORIDE [Concomitant]
     Active Substance: METFORMIN HYDROCHLORIDE
  35. GABAPENTIN [Concomitant]
     Active Substance: GABAPENTIN
  36. GLIMEPIRIDE [Concomitant]
     Active Substance: GLIMEPIRIDE
  37. OXYBUTYNIN [Concomitant]
     Active Substance: OXYBUTYNIN
  38. JANUVIA [Concomitant]
     Active Substance: SITAGLIPTIN PHOSPHATE
  39. CATAPRES [Concomitant]
     Active Substance: CLONIDINE HYDROCHLORIDE
  40. VERAPAMIL HYDROCHLORIDE [Concomitant]
     Active Substance: VERAPAMIL HYDROCHLORIDE
  41. DULOXETINE [Concomitant]
     Active Substance: DULOXETINE
  42. BYSTOLIC [Concomitant]
     Active Substance: NEBIVOLOL HYDROCHLORIDE
  43. MORPHINE [Concomitant]
     Active Substance: MORPHINE
  44. POTASSIUM CHLORIDE [Concomitant]
     Active Substance: POTASSIUM CHLORIDE
  45. FERROUS SULFATE [Concomitant]
     Active Substance: FERROUS SULFATE
  46. MAGNESIUM OXIDE [Concomitant]
     Active Substance: MAGNESIUM OXIDE
  47. MIRALAX [Concomitant]
     Active Substance: POLYETHYLENE GLYCOL 3350
  48. GLUCAGON [Concomitant]
     Active Substance: GLUCAGON
  49. HUMALOG [Concomitant]
     Active Substance: INSULIN LISPRO
  50. VITAMIN B1 [Concomitant]
     Active Substance: THIAMINE HYDROCHLORIDE
  51. VICTOZA [Concomitant]
     Active Substance: LIRAGLUTIDE
  52. CALCIUM [Concomitant]
     Active Substance: CALCIUM
  53. NICOTINE [Concomitant]
     Active Substance: NICOTINE
  54. BYDUREON [Concomitant]
     Active Substance: EXENATIDE
  55. SPIRONOLACTONE [Concomitant]
     Active Substance: SPIRONOLACTONE
  56. HYDRALAZINE HYDROCHLORIDE [Concomitant]
     Active Substance: HYDRALAZINE HYDROCHLORIDE
  57. ONDANSETRON [Concomitant]
     Active Substance: ONDANSETRON

REACTIONS (4)
  - Chronic kidney disease [Not Recovered/Not Resolved]
  - Acute kidney injury [Not Recovered/Not Resolved]
  - Renal failure [Unknown]
  - Gastrooesophageal reflux disease [Not Recovered/Not Resolved]

NARRATIVE: CASE EVENT DATE: 20160101
